FAERS Safety Report 6893761-3 (Version None)
Quarter: 2010Q3

REPORT INFORMATION
  Report Type: 
  Country: None (occurrence: None)
  Receive Date: 20100802
  Receipt Date: 20100720
  Transmission Date: 20110219
  Serious: Yes (Hospitalization)
  Sender: FDA-Public Use
  Company Number: FR-BIOGENIDEC-2010BI024574

PATIENT
  Age: 26 Year
  Sex: Female

DRUGS (13)
  1. TYSABRI [Suspect]
     Indication: MULTIPLE SCLEROSIS
     Route: 042
     Dates: start: 20071004, end: 20091224
  2. METFORMIN HCL [Concomitant]
     Indication: DIABETES MELLITUS
     Dates: start: 20090701
  3. ASPEGIC 1000 [Concomitant]
     Indication: THROMBOSIS PROPHYLAXIS
     Dates: start: 20010101
  4. LEVOTONINE [Concomitant]
     Indication: CEREBELLAR ATAXIA
     Dates: start: 20080101
  5. BACLOFENE [Concomitant]
     Indication: MUSCLE SPASTICITY
     Route: 048
     Dates: start: 20080926
  6. PRIMIDONE [Concomitant]
     Indication: CEREBELLAR ATAXIA
     Route: 048
     Dates: start: 20081224
  7. CLONAZEPAM [Concomitant]
     Indication: CEREBELLAR ATAXIA
     Dates: start: 20010101
  8. CITALOPRAM [Concomitant]
     Indication: DEPRESSION
     Route: 048
     Dates: start: 20081224
  9. MACROGOL [Concomitant]
     Indication: CONSTIPATION
     Dates: start: 20080824
  10. OMEPRAZOLE [Concomitant]
     Indication: ABDOMINAL PAIN UPPER
  11. TRAMADOL HYDROCHLORIDE [Concomitant]
     Indication: PAIN
  12. PREGABALINE [Concomitant]
     Indication: PAIN
     Dates: start: 20090901
  13. DANTROLENE [Concomitant]
     Indication: MUSCLE SPASTICITY

REACTIONS (2)
  - ESCHERICHIA INFECTION [None]
  - PYELONEPHRITIS ACUTE [None]
